FAERS Safety Report 10381235 (Version 4)
Quarter: 2017Q4

REPORT INFORMATION
  Report Type: Spontaneous
  Country: US (occurrence: US)
  Receive Date: 20140813
  Receipt Date: 20171011
  Transmission Date: 20180320
  Serious: Yes (Hospitalization, Other)
  Sender: FDA-Public Use
  Company Number: US-009507513-1408USA001742

PATIENT
  Sex: Female

DRUGS (2)
  1. FOSAMAX [Suspect]
     Active Substance: ALENDRONATE SODIUM
     Indication: OSTEOPOROSIS
     Dosage: 70 MG, QW
     Route: 048
     Dates: start: 20010527, end: 201010
  2. FOSAMAX [Suspect]
     Active Substance: ALENDRONATE SODIUM
     Indication: OSTEOPENIA

REACTIONS (15)
  - Anaemia postoperative [Unknown]
  - Basal cell carcinoma [Unknown]
  - Hyperlipidaemia [Unknown]
  - Femur fracture [Not Recovered/Not Resolved]
  - Skin lesion [Unknown]
  - Vitamin D deficiency [Unknown]
  - Intramedullary rod insertion [Unknown]
  - Joint arthroplasty [Unknown]
  - Upper limb fracture [Not Recovered/Not Resolved]
  - Urinary tract infection [Unknown]
  - Eye disorder [Unknown]
  - Foot fracture [Unknown]
  - Endometriosis [Unknown]
  - Open reduction of fracture [Unknown]
  - Joint crepitation [Unknown]

NARRATIVE: CASE EVENT DATE: 2010
